FAERS Safety Report 11681656 (Version 1)
Quarter: 2015Q4

REPORT INFORMATION
  Report Type: Spontaneous
  Country: US (occurrence: None)
  Receive Date: 20151028
  Receipt Date: 20151028
  Transmission Date: 20160304
  Serious: Yes (Other)
  Sender: FDA-Public Use
  Company Number: None

PATIENT
  Age: 50 Year
  Sex: Female
  Weight: 61.24 kg

DRUGS (1)
  1. CIPRO [Suspect]
     Active Substance: CIPROFLOXACIN HYDROCHLORIDE
     Indication: APPENDICITIS PERFORATED
     Dosage: INTO A VEIN
     Route: 042
     Dates: start: 20120619, end: 20120622

REACTIONS (15)
  - Bladder disorder [None]
  - Skin disorder [None]
  - Diplopia [None]
  - Cognitive disorder [None]
  - Gait disturbance [None]
  - Otorrhoea [None]
  - Cerebrospinal fluid leakage [None]
  - Vertigo [None]
  - Rhinorrhoea [None]
  - Tendon pain [None]
  - Time perception altered [None]
  - Headache [None]
  - Tinnitus [None]
  - Connective tissue disorder [None]
  - Tendon disorder [None]

NARRATIVE: CASE EVENT DATE: 20131201
